FAERS Safety Report 8033792-3 (Version None)
Quarter: 2012Q1

REPORT INFORMATION
  Report Type: 
  Country: None (occurrence: None)
  Receive Date: 20120110
  Receipt Date: 20120105
  Transmission Date: 20120608
  Serious: No
  Sender: FDA-Public Use
  Company Number: US-PFIZER INC-2012004353

PATIENT
  Sex: Female
  Weight: 65.8 kg

DRUGS (4)
  1. ESTRADERM [Suspect]
     Indication: PROPHYLAXIS
  2. ESTRADIOL [Suspect]
     Indication: MOOD SWINGS
     Dosage: 0.5 MG, DAILY
     Dates: start: 20110401, end: 20110915
  3. PREMARIN [Suspect]
     Indication: SMEAR CERVIX ABNORMAL
  4. PREMARIN [Suspect]
     Indication: OFF LABEL USE
     Dosage: 0.05 MG, 2X/WEEK
     Route: 067
     Dates: start: 20000101, end: 20111101

REACTIONS (5)
  - ALOPECIA [None]
  - EYE IRRITATION [None]
  - CONTACT LENS INTOLERANCE [None]
  - DRUG INEFFECTIVE [None]
  - DRY EYE [None]
